FAERS Safety Report 5859076-7 (Version None)
Quarter: 2008Q3

REPORT INFORMATION
  Report Type: 
  Country: None (occurrence: None)
  Receive Date: 20080827
  Receipt Date: 20080822
  Transmission Date: 20090109
  Serious: Yes (Death, Hospitalization, Other)
  Sender: FDA-Public Use
  Company Number: TR-BRISTOL-MYERS SQUIBB COMPANY-13982970

PATIENT
  Age: 32 Year
  Sex: Female
  Weight: 66 kg

DRUGS (6)
  1. CARBOPLATIN [Suspect]
     Indication: SMALL CELL LUNG CANCER STAGE UNSPECIFIED
     Dosage: THERAPY ON 30OCT07, 412MG/DAY
     Dates: start: 20071005
  2. ALIMTA [Suspect]
     Indication: SMALL CELL LUNG CANCER STAGE UNSPECIFIED
     Dosage: THERAPY ON 30OCT07, 468MG/DAY
     Dates: start: 20071005
  3. LANSOPRAZOLE [Concomitant]
     Indication: GASTRITIS
     Dates: start: 20070710
  4. FOLIC ACID [Concomitant]
     Indication: PROPHYLAXIS
     Dates: start: 20070929
  5. VITAMIN B-12 [Concomitant]
     Indication: PROPHYLAXIS
     Dates: start: 20070929
  6. DEXAMETHASONE TAB [Concomitant]
     Dosage: 20-AUG-2007 TO 10-SEP-2007, (1 DAY) 04-OCT-2007 TO 06-OCT-2007, (1 DAY) 29-OCT-2007 TO 31-OCT-2007
     Dates: start: 20070820

REACTIONS (15)
  - ASCITES [None]
  - CONSTIPATION [None]
  - DRUG TOXICITY [None]
  - LEUKOPENIA [None]
  - METASTASES TO LIVER [None]
  - NEUTROPENIA [None]
  - NEUTROPENIC INFECTION [None]
  - PERITONITIS [None]
  - PLEURAL EFFUSION [None]
  - PNEUMONIA [None]
  - RENAL FAILURE ACUTE [None]
  - RESPIRATORY FAILURE [None]
  - SEPTIC SHOCK [None]
  - SUBILEUS [None]
  - THROMBOCYTOPENIA [None]
